FAERS Safety Report 5689873-2 (Version None)
Quarter: 2008Q1

REPORT INFORMATION
  Report Type: 
  Country: None (occurrence: None)
  Receive Date: 20080331
  Receipt Date: 20080331
  Transmission Date: 20080703
  Serious: Yes (Other)
  Sender: FDA-Public Use
  Company Number: None

PATIENT
  Age: 30 Year
  Sex: Female
  Weight: 62.1428 kg

DRUGS (2)
  1. FLUCONAZOLE [Suspect]
     Indication: VULVOVAGINAL MYCOTIC INFECTION
     Dosage: 150MG 1 TIME PO SINGLE DOSE
     Route: 048
     Dates: start: 20080326, end: 20080326
  2. ORAL CONTRACEPTIVE -TRI-SPRINTEC- [Concomitant]

REACTIONS (5)
  - ANXIETY [None]
  - DRUG HYPERSENSITIVITY [None]
  - DYSGEUSIA [None]
  - DYSPNOEA [None]
  - PARANOIA [None]
